FAERS Safety Report 21184316 (Version 1)
Quarter: 2022Q3

REPORT INFORMATION
  Report Type: Spontaneous
  Country: US (occurrence: None)
  Receive Date: 20220807
  Receipt Date: 20220807
  Transmission Date: 20221026
  Serious: Yes (Hospitalization)
  Sender: FDA-Public Use
  Company Number: None

PATIENT
  Age: 45 Year
  Sex: Male
  Weight: 91.8 kg

DRUGS (2)
  1. .DELTA.8-TETRAHYDROCANNABINOL\CANNABIDIOL\HERBALS [Suspect]
     Active Substance: .DELTA.8-TETRAHYDROCANNABINOL\CANNABIDIOL\HERBALS
     Indication: Analgesic therapy
     Dosage: OTHER QUANTITY : 1 TABLET(S);?
     Route: 048
     Dates: start: 20220806, end: 20220806
  2. CELEBREX [Concomitant]
     Active Substance: CELECOXIB

REACTIONS (8)
  - Syncope [None]
  - Heart rate increased [None]
  - Blood pressure decreased [None]
  - Depression [None]
  - Anxiety [None]
  - Sensory disturbance [None]
  - Dehydration [None]
  - Blood creatine increased [None]

NARRATIVE: CASE EVENT DATE: 20220806
